FAERS Safety Report 14098634 (Version 3)
Quarter: 2017Q4

REPORT INFORMATION
  Report Type: Spontaneous
  Country: US (occurrence: US)
  Receive Date: 20171017
  Receipt Date: 20171127
  Transmission Date: 20180321
  Serious: Yes (Hospitalization, Other)
  Sender: FDA-Public Use
  Company Number: US-WEST-WARD PHARMACEUTICALS CORP.-US-H14001-17-03896

PATIENT
  Sex: Male
  Weight: 88.08 kg

DRUGS (2)
  1. BALSALAZIDE [Suspect]
     Active Substance: BALSALAZIDE
     Indication: DIVERTICULITIS
     Route: 048
     Dates: start: 201705, end: 20171005
  2. BALSALAZIDE [Suspect]
     Active Substance: BALSALAZIDE
     Indication: CROHN^S DISEASE
     Route: 048
     Dates: start: 201611, end: 20170428

REACTIONS (2)
  - Arthralgia [Recovering/Resolving]
  - Colonic abscess [Unknown]

NARRATIVE: CASE EVENT DATE: 2017
